FAERS Safety Report 17740508 (Version 1)
Quarter: 2020Q2

REPORT INFORMATION
  Report Type: Spontaneous
  Country: US (occurrence: US)
  Receive Date: 20200503
  Receipt Date: 20200503
  Transmission Date: 20200714
  Serious: Yes (Other)
  Sender: FDA-Public Use
  Company Number: None

PATIENT
  Age: 40 Year
  Sex: Female
  Weight: 113.4 kg

DRUGS (5)
  1. ALBUTEROL INHALER [Concomitant]
     Active Substance: ALBUTEROL
  2. ZOLOFT [Concomitant]
     Active Substance: SERTRALINE HYDROCHLORIDE
  3. NEXPLANON [Suspect]
     Active Substance: ETONOGESTREL
     Indication: CONTRACEPTION
     Dates: start: 20180801
  4. ALBUTEROL INHALATION SOLUTION [Concomitant]
     Active Substance: ALBUTEROL
  5. FERROUS SULFATE. [Concomitant]
     Active Substance: FERROUS SULFATE

REACTIONS (9)
  - Thrombosis [None]
  - Pain [None]
  - Hypoaesthesia [None]
  - Hypersensitivity [None]
  - Chest pain [None]
  - Dizziness [None]
  - Neck pain [None]
  - Fall [None]
  - Peripheral swelling [None]

NARRATIVE: CASE EVENT DATE: 20200301
